FAERS Safety Report 6126361-3 (Version None)
Quarter: 2009Q1

REPORT INFORMATION
  Report Type: 
  Country: None (occurrence: None)
  Receive Date: 20090320
  Receipt Date: 20090313
  Transmission Date: 20090719
  Serious: Yes (Other)
  Sender: FDA-Public Use
  Company Number: JP-AVENTIS-200910732JP

PATIENT
  Age: 73 Year
  Sex: Male

DRUGS (2)
  1. ALLEGRA [Suspect]
     Dosage: DOSE: 60 MG X 1 TABLET
     Route: 048
     Dates: start: 20080601, end: 20080701
  2. UNKNOWN DRUG [Suspect]

REACTIONS (1)
  - CHOLESTASIS [None]
